FAERS Safety Report 21629653 (Version 2)
Quarter: 2022Q4

REPORT INFORMATION
  Report Type: Spontaneous
  Country: FR (occurrence: FR)
  Receive Date: 20221122
  Receipt Date: 20221222
  Transmission Date: 20230113
  Serious: Yes (Other)
  Sender: FDA-Public Use
  Company Number: None

PATIENT
  Age: 71 Year
  Sex: Male
  Weight: 61 kg

DRUGS (5)
  1. NEXAVAR [Suspect]
     Active Substance: SORAFENIB
     Indication: Hepatocellular carcinoma
     Dosage: 800 MG, QD
     Dates: start: 20220308, end: 20220811
  2. NEXAVAR [Suspect]
     Active Substance: SORAFENIB
     Indication: Hepatocellular carcinoma
     Dosage: 200 MG, BID
  3. INNOHEP [Concomitant]
     Active Substance: TINZAPARIN SODIUM
  4. TINZAPARIN [Concomitant]
     Active Substance: TINZAPARIN
     Dosage: 175INTERNATIONALUNIT(IU)/KG10,000IU/D
  5. ATORVASTATIN [Concomitant]
     Active Substance: ATORVASTATIN

REACTIONS (7)
  - Cerebral infarction [Recovering/Resolving]
  - Hemihypoaesthesia [None]
  - Pulmonary embolism [Recovering/Resolving]
  - Hypoaesthesia [None]
  - Gait disturbance [None]
  - Chest pain [None]
  - Dyspnoea exertional [None]

NARRATIVE: CASE EVENT DATE: 20220308
